FAERS Safety Report 4968059-0 (Version None)
Quarter: 2006Q2

REPORT INFORMATION
  Report Type: 
  Country: None (occurrence: None)
  Receive Date: 20060405
  Receipt Date: 20060324
  Transmission Date: 20061013
  Serious: Yes (Life-Threatening, Hospitalization)
  Sender: FDA-Public Use
  Company Number: 02100-JPN-06-0111

PATIENT
  Sex: Male

DRUGS (1)
  1. CILOSTAZOL [Suspect]
     Dosage: 100 MG ORAL
     Route: 048

REACTIONS (4)
  - FLUID RETENTION [None]
  - GENERALISED OEDEMA [None]
  - SYNCOPE [None]
  - WEIGHT INCREASED [None]
